FAERS Safety Report 6005802-6 (Version None)
Quarter: 2008Q4

REPORT INFORMATION
  Report Type: 
  Country: None (occurrence: None)
  Receive Date: 20081217
  Receipt Date: 20081210
  Transmission Date: 20090506
  Serious: Yes (Other)
  Sender: FDA-Public Use
  Company Number: FR-BAYER-200832573GPV

PATIENT
  Age: 38 Year
  Sex: Female

DRUGS (3)
  1. CIPROFLOXACIN HYDROCHLORIDE [Suspect]
     Indication: PYREXIA
     Dosage: UNIT DOSE: 500 MG
     Route: 048
     Dates: start: 20080824, end: 20080902
  2. TOPALGIC [Concomitant]
     Indication: CHEST PAIN
     Dosage: UNIT DOSE: 50 MG
     Route: 048
     Dates: start: 20080828, end: 20080906
  3. TAZOCILLINE [Concomitant]
     Indication: DRUG USE FOR UNKNOWN INDICATION
     Route: 065
     Dates: start: 20080902

REACTIONS (2)
  - CHOLESTASIS [None]
  - CYTOLYTIC HEPATITIS [None]
